FAERS Safety Report 7122825-4 (Version None)
Quarter: 2010Q4

REPORT INFORMATION
  Report Type: 
  Country: None (occurrence: None)
  Receive Date: 20101124
  Receipt Date: 20101112
  Transmission Date: 20110411
  Serious: Yes (Hospitalization, Other)
  Sender: FDA-Public Use
  Company Number: PHEH2007US04858

PATIENT
  Sex: Female

DRUGS (15)
  1. AREDIA [Suspect]
     Indication: BONE DENSITY DECREASED
     Dosage: UNK, QMO
  2. ZOMETA [Suspect]
     Indication: RESORPTION BONE INCREASED
     Dosage: UNK, QMO
  3. CHEMOTHERAPEUTICS NOS [Concomitant]
  4. LEVOXYL [Concomitant]
  5. DILTIAZEM [Concomitant]
  6. TRIMETHOPRIM [Concomitant]
  7. DILAUDID [Concomitant]
     Dosage: 1 TO 2 TABLETS EVERY 4-6 HRS.
     Route: 048
     Dates: start: 20060516
  8. MS CONTIN [Concomitant]
     Dosage: 1 DF, BID
     Route: 048
     Dates: start: 20060807
  9. FOSAMAX [Concomitant]
     Dosage: 1 EVERY 7 DAYS
     Dates: start: 20051121
  10. HEPARIN [Concomitant]
     Route: 042
  11. TRIAMTERENE [Concomitant]
  12. HYDROCHLOROTHIAZIDE [Concomitant]
  13. CARDIZEM [Concomitant]
  14. ANZEMET [Concomitant]
  15. ATIVAN [Concomitant]

REACTIONS (69)
  - ABSCESS [None]
  - APHASIA [None]
  - ARTHRALGIA [None]
  - BACK PAIN [None]
  - BLOOD CHOLESTEROL INCREASED [None]
  - BONE DISORDER [None]
  - BREAST CYST [None]
  - BREAST MASS [None]
  - BRONCHITIS [None]
  - CAROTID ARTERY DISEASE [None]
  - CENTRAL VENOUS CATHETERISATION [None]
  - CEREBROVASCULAR ACCIDENT [None]
  - CHOLELITHIASIS [None]
  - CONVULSION [None]
  - COUGH [None]
  - DEBRIDEMENT [None]
  - DEPRESSION [None]
  - DYSFUNCTIONAL UTERINE BLEEDING [None]
  - DYSPNOEA EXERTIONAL [None]
  - ELECTROCARDIOGRAM ABNORMAL [None]
  - ELECTROCARDIOGRAM ST-T SEGMENT ABNORMAL [None]
  - EXCESSIVE GRANULATION TISSUE [None]
  - FATIGUE [None]
  - FUNGAL INFECTION [None]
  - GENERALISED ANXIETY DISORDER [None]
  - HAEMATOCRIT DECREASED [None]
  - HAEMOGLOBIN DECREASED [None]
  - HEART RATE INCREASED [None]
  - HEPATIC CYST [None]
  - HEPATIC LESION [None]
  - HIATUS HERNIA [None]
  - INFECTION [None]
  - INSOMNIA [None]
  - INTERVERTEBRAL DISC DEGENERATION [None]
  - INTERVERTEBRAL DISC DISORDER [None]
  - JAW DISORDER [None]
  - LYMPHADENOPATHY [None]
  - MARROW HYPERPLASIA [None]
  - METASTASES TO BONE [None]
  - METASTASES TO SPINE [None]
  - MONOCYTE COUNT INCREASED [None]
  - MULTIPLE MYELOMA [None]
  - MUSCLE SPASMS [None]
  - MUSCULOSKELETAL CHEST PAIN [None]
  - NAUSEA [None]
  - OBSTRUCTIVE AIRWAYS DISORDER [None]
  - ORAL DISORDER [None]
  - OSTEOARTHRITIS [None]
  - OSTEOLYSIS [None]
  - OSTEOMYELITIS [None]
  - OSTEONECROSIS OF JAW [None]
  - OSTEOPENIA [None]
  - OSTEOSCLEROSIS [None]
  - PAIN [None]
  - PERIODONTITIS [None]
  - PRIMARY SEQUESTRUM [None]
  - SIALOADENITIS [None]
  - SKIN INDURATION [None]
  - SOFT TISSUE DISORDER [None]
  - SPINAL HAEMANGIOMA [None]
  - SPIROMETRY ABNORMAL [None]
  - SPLENIC CYST [None]
  - SUBMANDIBULAR MASS [None]
  - SWELLING [None]
  - TENDERNESS [None]
  - TENDON RUPTURE [None]
  - TOOTH EXTRACTION [None]
  - TYPE 2 DIABETES MELLITUS [None]
  - VOMITING [None]
